FAERS Safety Report 4290406-6 (Version None)
Quarter: 2004Q1

REPORT INFORMATION
  Report Type: 
  Country: None (occurrence: None)
  Receive Date: 20040209
  Receipt Date: 20040127
  Transmission Date: 20041129
  Serious: Yes (Other)
  Sender: FDA-Public Use
  Company Number: 2004196815US

PATIENT
  Age: 67 Year
  Sex: Male

DRUGS (3)
  1. HEPARIN SODIUM INJECTION [Suspect]
     Dosage: IV
     Route: 042
  2. ASACARD (ACETYLSALICYLIC ACID) CAPSULE, PROLONGED RELEASE [Suspect]
  3. CLOPIDOGREL BISULFATE [Suspect]

REACTIONS (2)
  - ARTERY DISSECTION [None]
  - CEREBRAL INFARCTION [None]
